FAERS Safety Report 10210706 (Version 2)
Quarter: 2014Q2

REPORT INFORMATION
  Report Type: Report from Study
  Country: DE (occurrence: DE)
  Receive Date: 20140602
  Receipt Date: 20140617
  Transmission Date: 20141212
  Serious: Yes (Other)
  Sender: FDA-Public Use
  Company Number: DE-ACTELION-A-CH2014-99438

PATIENT
  Age: 6 Year
  Sex: Male
  Weight: 13.4 kg

DRUGS (1)
  1. ZAVESCA [Suspect]
     Indication: NIEMANN-PICK DISEASE
     Dosage: UNK
     Route: 048
     Dates: start: 201304, end: 20130730

REACTIONS (8)
  - Convulsion [Unknown]
  - Tremor [Unknown]
  - Keratitis [Unknown]
  - Lagophthalmos [Unknown]
  - Hepatomegaly [Recovered/Resolved]
  - Gastrostomy [Unknown]
  - Endoscopy upper gastrointestinal tract abnormal [Unknown]
  - Haemoglobin decreased [Unknown]
